FAERS Safety Report 12918487 (Version 4)
Quarter: 2017Q1

REPORT INFORMATION
  Report Type: Spontaneous
  Country: US (occurrence: US)
  Receive Date: 20161107
  Receipt Date: 20170109
  Transmission Date: 20170428
  Serious: Yes (Other)
  Sender: FDA-Public Use
  Company Number: US-PFIZER INC-2016514664

PATIENT
  Age: 76 Year
  Sex: Female
  Weight: 80.27 kg

DRUGS (3)
  1. IBRANCE [Suspect]
     Active Substance: PALBOCICLIB
     Indication: BREAST CANCER METASTATIC
     Dosage: 125 MG, CYCLIC (DAYS 1-21 Q28 DAYS)
     Route: 048
     Dates: start: 20161022
  2. IBRANCE [Suspect]
     Active Substance: PALBOCICLIB
     Dosage: 125 MG, CYCLIC (DAYS 1-21 Q28 DAYS)
     Route: 048
     Dates: start: 20161026
  3. IBRANCE [Suspect]
     Active Substance: PALBOCICLIB
     Dosage: 100 MG, CYCLIC (DAYS 1-21 Q28 DAYS)
     Route: 048
     Dates: start: 20161026, end: 201612

REACTIONS (18)
  - Fatigue [Unknown]
  - Asthenia [Unknown]
  - Migraine [Unknown]
  - Memory impairment [Unknown]
  - Vision blurred [Unknown]
  - Dysphonia [Unknown]
  - Abdominal distension [Unknown]
  - Balance disorder [Unknown]
  - Haemoglobin decreased [Unknown]
  - Dizziness [Unknown]
  - Neoplasm progression [Unknown]
  - Cognitive disorder [Unknown]
  - Decreased appetite [Unknown]
  - Skin haemorrhage [Unknown]
  - Full blood count decreased [Unknown]
  - Dysgeusia [Unknown]
  - Nausea [Unknown]
  - Diarrhoea [Unknown]
